FAERS Safety Report 11149348 (Version 1)
Quarter: 2015Q2

REPORT INFORMATION
  Report Type: Spontaneous
  Country: BR (occurrence: None)
  Receive Date: 20150527
  Receipt Date: 20150527
  Transmission Date: 20150821
  Serious: Yes (Other)
  Sender: FDA-Public Use
  Company Number: BR-TORRENT-00002940

PATIENT
  Age: 57 Year
  Sex: Female

DRUGS (3)
  1. VENLIFT OD [Suspect]
     Active Substance: VENLAFAXINE HYDROCHLORIDE
     Indication: DEPRESSION
     Route: 048
     Dates: start: 2010
  2. QUETIAPINE [Concomitant]
     Active Substance: QUETIAPINE
  3. LAMICTAL [Concomitant]
     Active Substance: LAMOTRIGINE

REACTIONS (9)
  - Malocclusion [None]
  - Diarrhoea [None]
  - Breast cancer [None]
  - Malaise [None]
  - Migraine [None]
  - Drug ineffective [None]
  - Depression [None]
  - Vomiting [None]
  - Gastric disorder [None]

NARRATIVE: CASE EVENT DATE: 201504
